FAERS Safety Report 6043554-4 (Version None)
Quarter: 2009Q1

REPORT INFORMATION
  Report Type: 
  Country: None (occurrence: None)
  Receive Date: 20090114
  Receipt Date: 20090114
  Transmission Date: 20090719
  Serious: Yes (Hospitalization, Disabling)
  Sender: FDA-Public Use
  Company Number: None

PATIENT
  Age: 58 Year
  Sex: Male
  Weight: 73.2 kg

DRUGS (2)
  1. LEVAQUIN [Suspect]
     Indication: PNEUMONIA
     Dosage: 750MG Q24H IV
     Route: 042
     Dates: start: 20090107, end: 20090110
  2. FLUCONAZOLE [Suspect]
     Indication: PNEUMONIA
     Dosage: 400MG Q24H IV
     Route: 042
     Dates: start: 20090107, end: 20090111

REACTIONS (5)
  - BLOOD MAGNESIUM DECREASED [None]
  - BLOOD POTASSIUM DECREASED [None]
  - CARDIAC ARREST [None]
  - TORSADE DE POINTES [None]
  - VENTRICULAR FIBRILLATION [None]
